FAERS Safety Report 21709598 (Version 1)
Quarter: 2022Q4

REPORT INFORMATION
  Report Type: Spontaneous
  Country: IN (occurrence: IN)
  Receive Date: 20221210
  Receipt Date: 20221210
  Transmission Date: 20230113
  Serious: Yes (Death, Life-Threatening, Hospitalization, Other)
  Sender: FDA-Public Use
  Company Number: IN-MLMSERVICE-2022112239281091

PATIENT
  Age: 71 Year
  Sex: Female

DRUGS (3)
  1. MITOMYCIN [Suspect]
     Active Substance: MITOMYCIN
     Indication: Mucinous adenocarcinoma of appendix
     Route: 033
  2. DOXORUBICIN [Suspect]
     Active Substance: DOXORUBICIN
     Indication: Hyperthermic chemotherapy
     Route: 033
  3. DOXORUBICIN [Suspect]
     Active Substance: DOXORUBICIN
     Indication: Mucinous adenocarcinoma of appendix
     Route: 033

REACTIONS (2)
  - Acute kidney injury [Fatal]
  - Shock [Fatal]
